FAERS Safety Report 21622721 (Version 1)
Quarter: 2022Q4

REPORT INFORMATION
  Report Type: Spontaneous
  Country: US (occurrence: US)
  Receive Date: 20221121
  Receipt Date: 20221121
  Transmission Date: 20230113
  Serious: Yes (Other)
  Sender: FDA-Public Use
  Company Number: US-ELI_LILLY_AND_COMPANY-US202211004846

PATIENT
  Sex: Male

DRUGS (1)
  1. RETEVMO [Suspect]
     Active Substance: SELPERCATINIB
     Indication: Product used for unknown indication
     Dosage: 80 MG, UNKNOWN
     Route: 065

REACTIONS (2)
  - Head and neck cancer [Unknown]
  - Dysphagia [Unknown]
